FAERS Safety Report 11633136 (Version 1)
Quarter: 2015Q4

REPORT INFORMATION
  Report Type: Spontaneous
  Country: US (occurrence: None)
  Receive Date: 20151014
  Receipt Date: 20151014
  Transmission Date: 20160304
  Serious: Yes (Other)
  Sender: FDA-Public Use
  Company Number: None

PATIENT
  Age: 56 Year
  Sex: Female
  Weight: 59.88 kg

DRUGS (8)
  1. CLINDAMYCIN PHOSPHATE LOTION TOPICAL SUSPENSION USP, 1% [Suspect]
     Active Substance: CLINDAMYCIN PHOSPHATE
     Indication: ROSACEA
     Dosage: APPLY THIN FILM; ONCE DAILY EVERY EVENING
     Route: 061
     Dates: start: 20150601, end: 20150612
  2. FLUTICASONE PROPIONATE CREAM [Concomitant]
  3. CLINDAMYCIN PHOSPHATE LOTION TOPICAL SUSPENSION USP, 1% [Suspect]
     Active Substance: CLINDAMYCIN PHOSPHATE
     Indication: ACNE
     Dosage: APPLY THIN FILM; ONCE DAILY EVERY EVENING
     Route: 061
     Dates: start: 20150601, end: 20150612
  4. DORYX [Concomitant]
     Active Substance: DOXYCYCLINE HYCLATE
  5. CLINDAMYCIN PHOSPHATE LOTION TOPICAL SUSPENSION USP, 1% [Suspect]
     Active Substance: CLINDAMYCIN PHOSPHATE
     Indication: DERMATITIS CONTACT
     Dosage: APPLY THIN FILM; ONCE DAILY EVERY EVENING
     Route: 061
     Dates: start: 20150601, end: 20150612
  6. SYNTHROID [Concomitant]
     Active Substance: LEVOTHYROXINE SODIUM
  7. CLINDAMYCIN PHOSPHATE LOTION TOPICAL SUSPENSION USP, 1% [Suspect]
     Active Substance: CLINDAMYCIN PHOSPHATE
     Indication: SEBORRHOEIC DERMATITIS
     Dosage: APPLY THIN FILM; ONCE DAILY EVERY EVENING
     Route: 061
     Dates: start: 20150601, end: 20150612
  8. BAYER LOW DOSE ASPIRIN [Concomitant]

REACTIONS (10)
  - Rhinalgia [None]
  - Pain of skin [None]
  - Skin exfoliation [None]
  - Chest pain [None]
  - Pollakiuria [None]
  - Diarrhoea [None]
  - Rhinorrhoea [None]
  - Throat irritation [None]
  - Skin erosion [None]
  - Skin discolouration [None]

NARRATIVE: CASE EVENT DATE: 20150606
